FAERS Safety Report 16193968 (Version 1)
Quarter: 2019Q2

REPORT INFORMATION
  Report Type: Spontaneous
  Country: US (occurrence: US)
  Receive Date: 20190413
  Receipt Date: 20190413
  Transmission Date: 20190711
  Serious: Yes (Other)
  Sender: FDA-Public Use
  Company Number: PHHY2019US085343

PATIENT
  Age: 92 Year
  Sex: Female

DRUGS (1)
  1. ICAPS [Suspect]
     Active Substance: MINERALS\VITAMINS
     Indication: AGE-RELATED MACULAR DEGENERATION
     Route: 065

REACTIONS (3)
  - Product shape issue [Unknown]
  - Choking [Recovered/Resolved]
  - Product use complaint [Recovered/Resolved]
